FAERS Safety Report 23382815 (Version 3)
Quarter: 2024Q1

REPORT INFORMATION
  Report Type: Spontaneous
  Country: US (occurrence: US)
  Receive Date: 20240109
  Receipt Date: 20240116
  Transmission Date: 20240410
  Serious: No
  Sender: FDA-Public Use
  Company Number: US-OPELLA-2024OHG000322

PATIENT
  Sex: Female

DRUGS (2)
  1. ICY HOT MEDICATED NO MESS APPLICATOR [Suspect]
     Active Substance: MENTHOL
     Indication: Product used for unknown indication
     Dosage: STRENGTH - 7,04 G/44 ML
     Route: 061
  2. ICY HOT MEDICATED NO MESS APPLICATOR [Suspect]
     Active Substance: MENTHOL
     Dosage: STRENGTH - 11,68 G/73 ML

REACTIONS (2)
  - No adverse event [Unknown]
  - Drug ineffective [Unknown]
